FAERS Safety Report 4444115-0 (Version None)
Quarter: 2004Q3

REPORT INFORMATION
  Report Type: 
  Country: None (occurrence: None)
  Receive Date: 20040729
  Receipt Date: 20031009
  Transmission Date: 20050211
  Serious: Yes (Hospitalization)
  Sender: FDA-Public Use
  Company Number: US-JNJFOC-20031002377

PATIENT
  Age: 40 Year
  Sex: Female

DRUGS (7)
  1. RISPERDAL [Suspect]
     Indication: DEPRESSION
     Dosage: 4 MG, 1 IN 24 HOUR, ORAL
     Route: 048
     Dates: start: 20000101
  2. RISPERDAL [Concomitant]
  3. WELLBUTRIN [Concomitant]
  4. ADVAIR (SERETIDE MITE) [Concomitant]
  5. ALBUTEROL [Concomitant]
  6. LASIX [Concomitant]
  7. LEVOXYL [Concomitant]

REACTIONS (5)
  - ARTHRALGIA [None]
  - ASTHMA [None]
  - DRUG WITHDRAWAL SYNDROME [None]
  - HYPOTENSION [None]
  - OEDEMA PERIPHERAL [None]
